FAERS Safety Report 5027144-8 (Version None)
Quarter: 2006Q2

REPORT INFORMATION
  Report Type: 
  Country: None (occurrence: None)
  Receive Date: 20060612
  Receipt Date: 20060529
  Transmission Date: 20061013
  Serious: No
  Sender: FDA-Public Use
  Company Number: 06H-163-0308332-00

PATIENT
  Age: 46 Year
  Sex: Female

DRUGS (3)
  1. MORPHINE SULFATE INJ [Suspect]
     Indication: ANALGESIC THERAPY
     Dosage: CONTINUOUS
  2. MORPHINE [Concomitant]
  3. ANTIBIOTICS (ANTIBIOTICS) [Concomitant]

REACTIONS (5)
  - CATHETER RELATED COMPLICATION [None]
  - DRUG ADMINISTERED AT INAPPROPRIATE SITE [None]
  - MONOPARESIS [None]
  - MYELOPATHY [None]
  - SENSORY LOSS [None]
